FAERS Safety Report 8816627 (Version 1)
Quarter: 2012Q4

REPORT INFORMATION
  Report Type: Spontaneous
  Country: US (occurrence: None)
  Receive Date: 20120928
  Receipt Date: 20120928
  Transmission Date: 20130627
  Serious: Yes (Other)
  Sender: FDA-Public Use
  Company Number: None

PATIENT
  Age: 30 Year
  Sex: Female
  Weight: 61.24 kg

DRUGS (3)
  1. OXYCODONE AND ACETAMINOPHEN [Suspect]
     Indication: LUMBAGO
     Dosage: 1/2 to 1 tablet 4 to 6 hours po
     Route: 048
     Dates: start: 20120803, end: 20120926
  2. OXYCODONE AND ACETAMINOPHEN [Suspect]
     Indication: BACK PAIN
     Dosage: 1/2 to 1 tablet 4 to 6 hours po
     Route: 048
     Dates: start: 20120803, end: 20120926
  3. OXYCODONE AND ACETAMINOPHEN [Suspect]
     Indication: NECK PAIN
     Dosage: 1/2 to 1 tablet 4 to 6 hours po
     Route: 048
     Dates: start: 20120803, end: 20120926

REACTIONS (5)
  - Migraine [None]
  - Renal pain [None]
  - Aphthous stomatitis [None]
  - Glossitis [None]
  - Oral fungal infection [None]
